FAERS Safety Report 8767797 (Version 1)
Quarter: 2012Q4

REPORT INFORMATION
  Report Type: Report from Study
  Country: DE (occurrence: DE)
  Receive Date: 20120905
  Receipt Date: 20120905
  Transmission Date: 20130627
  Serious: Yes (Hospitalization)
  Sender: FDA-Public Use
  Company Number: DE-ROCHE-1113050

PATIENT
  Age: 19 Year
  Sex: Male
  Weight: 97.9 kg

DRUGS (12)
  1. VALCYTE [Suspect]
     Indication: RENAL TRANSPLANT
  2. METHYLPREDNISOLONE [Suspect]
     Indication: PROPHYLAXIS AGAINST TRANSPLANT REJECTION
     Dosage: date of last dose prior to SAE: 28/Sep/2011
     Route: 048
     Dates: start: 20110613
  3. TACROLIMUS [Suspect]
     Indication: PROPHYLAXIS AGAINST TRANSPLANT REJECTION
     Dosage: drug: Tacrolimus Prograf, date of last dose prior to SAE: 28/Sep/2011
     Route: 048
     Dates: start: 20110617
  4. CELLCEPT [Suspect]
     Indication: PRODUCT USED FOR UNKNOWN INDICATION
  5. CANDIO HERMAL [Concomitant]
     Indication: PROPHYLAXIS
     Dosage: dose: 3x1 Pip, date of last dose prior to SAE: 28/Sep/2011
     Route: 048
     Dates: start: 20110613
  6. CANDIO HERMAL [Concomitant]
     Dosage: dose: 3x1 Pip, date of last dose prior to SAE: 28/Sep/2011, drug indication: Aphthen
     Route: 048
     Dates: start: 20110928
  7. ROCEPHIN [Concomitant]
     Indication: PROPHYLAXIS
     Dosage: date of last dose prior to SAE: 28/Sep/2011
     Route: 048
     Dates: start: 20110613
  8. BICANORM [Concomitant]
     Indication: METABOLIC ACIDOSIS
     Dosage: date of last dose prior to SAE: 28/Sep/2011
     Route: 048
     Dates: start: 20110707
  9. ZANTIC [Concomitant]
     Indication: PROPHYLAXIS
     Dosage: date of last dose prior to SAE: 28/Sep/2011
     Route: 048
     Dates: start: 20110721
  10. VIGANTOLETTEN [Concomitant]
     Indication: HYPERPARATHYROIDISM SECONDARY
     Dosage: dose: 2000E, date of last dose prior to SAE: 28/Sep/2011
     Route: 048
     Dates: start: 20110831
  11. FORTUM [Concomitant]
     Dosage: date of last dose prior to SAE: 28/Sep/2011
     Route: 042
     Dates: start: 20110928
  12. AMPICILLIN [Concomitant]
     Dosage: date of last dose prior to SAE: 28/Sep/2011
     Route: 042
     Dates: start: 20110928

REACTIONS (1)
  - Epstein-Barr virus infection [Recovered/Resolved with Sequelae]
